FAERS Safety Report 25164299 (Version 1)
Quarter: 2025Q2

REPORT INFORMATION
  Report Type: Report from Study
  Country: AR (occurrence: AR)
  Receive Date: 20250405
  Receipt Date: 20250405
  Transmission Date: 20250716
  Serious: Yes (Hospitalization)
  Sender: AMGEN
  Company Number: AR-AMGEN-ARGSL2025022490

PATIENT
  Age: 57 Year
  Sex: Female

DRUGS (1)
  1. VECTIBIX [Suspect]
     Active Substance: PANITUMUMAB
     Indication: Colorectal cancer
     Dosage: UNK UNK, Q3WK (21 DAYS)
     Route: 065
     Dates: start: 20250130

REACTIONS (14)
  - Throat tightness [Unknown]
  - Diarrhoea [Unknown]
  - Vomiting [Unknown]
  - Swollen tongue [Unknown]
  - Illness [Unknown]
  - Somnolence [Unknown]
  - Fall [Unknown]
  - Walking disability [Unknown]
  - Drug intolerance [Unknown]
  - General physical health deterioration [Unknown]
  - Hypersensitivity [Unknown]
  - Dry skin [Unknown]
  - Skin tightness [Unknown]
  - Off label use [Unknown]

NARRATIVE: CASE EVENT DATE: 20250101
